FAERS Safety Report 23952858 (Version 1)
Quarter: 2024Q2

REPORT INFORMATION
  Report Type: Spontaneous
  Country: CN (occurrence: CN)
  Receive Date: 20240607
  Receipt Date: 20240607
  Transmission Date: 20240715
  Serious: Yes (Hospitalization)
  Sender: FDA-Public Use
  Company Number: CN-ABBVIE-5788106

PATIENT
  Age: 74 Year
  Sex: Female
  Weight: 60 kg

DRUGS (4)
  1. VENETOCLAX [Suspect]
     Active Substance: VENETOCLAX
     Indication: Leukaemia
     Dosage: 100 MILLIGRAM QD IH
     Route: 048
     Dates: start: 20240513, end: 20240601
  2. AZACITIDINE [Suspect]
     Active Substance: AZACITIDINE
     Indication: Leukaemia
     Dosage: 120 MILLIGRAM QD IH
     Route: 058
     Dates: start: 20240512, end: 20240518
  3. STERILE WATER [Concomitant]
     Active Substance: WATER
     Indication: Vehicle solution use
     Dosage: 4.8 MILLILITER
     Route: 058
     Dates: start: 20240512, end: 20240518
  4. GRANULOCYTE COLONY-STIMULATING FACTOR NOS [Concomitant]
     Active Substance: GRANULOCYTE COLONY-STIMULATING FACTOR NOS
     Indication: Product used for unknown indication
     Dosage: 300 UG QD IH

REACTIONS (1)
  - Myelosuppression [Recovering/Resolving]

NARRATIVE: CASE EVENT DATE: 20240528
